FAERS Safety Report 26054727 (Version 1)
Quarter: 2025Q4

REPORT INFORMATION
  Report Type: Spontaneous
  Country: US (occurrence: None)
  Receive Date: 20251117
  Receipt Date: 20251117
  Transmission Date: 20260117
  Serious: Yes (Hospitalization)
  Sender: FDA-CTU
  Company Number: None

PATIENT
  Age: 72 Year
  Sex: Male

DRUGS (1)
  1. LENALIDOMIDE [Suspect]
     Active Substance: LENALIDOMIDE
     Indication: Product used for unknown indication
     Dosage: OTHER FREQUENCY : 1 CAPUSLE MOUTH DAILY FOR 14 DAYS, THEN 7 DAYS OFF;?

REACTIONS (2)
  - Upper respiratory tract infection [None]
  - Pneumonia [None]
